FAERS Safety Report 9097147 (Version 1)
Quarter: 2013Q1

REPORT INFORMATION
  Report Type: Spontaneous
  Country: US (occurrence: US)
  Receive Date: 20130212
  Receipt Date: 20130212
  Transmission Date: 20140127
  Serious: Yes (Death, Hospitalization)
  Sender: FDA-Public Use
  Company Number: US-SANOFI-AVENTIS-2013SA005800

PATIENT
  Age: 63 Year
  Sex: Female
  Weight: 113 kg

DRUGS (6)
  1. CLINDAMYCIN [Suspect]
     Indication: STAPHYLOCOCCAL INFECTION
     Route: 048
  2. VANCOMYCIN [Suspect]
     Indication: STAPHYLOCOCCAL INFECTION
     Route: 042
  3. RIFAMPICIN [Suspect]
     Indication: STAPHYLOCOCCAL INFECTION
     Route: 048
  4. LEVOTHYROXINE [Concomitant]
  5. ATORVASTATIN [Concomitant]
  6. ACETAMINOPHEN W/HYDROCODONE [Concomitant]

REACTIONS (31)
  - Drug reaction with eosinophilia and systemic symptoms [Fatal]
  - Rash pruritic [Fatal]
  - Erythema [Fatal]
  - Papule [Fatal]
  - Blister [Fatal]
  - Skin exfoliation [Fatal]
  - Eosinophilia [Fatal]
  - C-reactive protein increased [Fatal]
  - Lymphadenopathy [Fatal]
  - Pleural effusion [Fatal]
  - Pancreatitis [Fatal]
  - Amylase increased [Fatal]
  - Aspartate aminotransferase increased [Fatal]
  - Coagulopathy [Fatal]
  - Nausea [Fatal]
  - Vomiting [Fatal]
  - Alanine aminotransferase increased [Fatal]
  - Blood alkaline phosphatase increased [Fatal]
  - Blood bilirubin increased [Fatal]
  - International normalised ratio increased [Fatal]
  - Jaundice [Fatal]
  - Hypotension [Fatal]
  - Urine output decreased [Fatal]
  - Blood urea increased [Fatal]
  - Blood creatinine increased [Fatal]
  - Gastrointestinal disorder [Unknown]
  - Multi-organ failure [None]
  - Metabolic acidosis [None]
  - Hepatic failure [None]
  - Respiratory failure [None]
  - Renal failure [None]
